FAERS Safety Report 23315946 (Version 2)
Quarter: 2024Q1

REPORT INFORMATION
  Report Type: Report from Study
  Country: CN (occurrence: CN)
  Receive Date: 20231219
  Receipt Date: 20240117
  Transmission Date: 20240410
  Serious: No
  Sender: FDA-Public Use
  Company Number: CN-PFIZER INC-PV202300203874

PATIENT
  Age: 88 Year
  Sex: Female

DRUGS (28)
  1. NIRMATRELVIR\RITONAVIR [Suspect]
     Active Substance: NIRMATRELVIR\RITONAVIR
     Indication: COVID-19
     Dosage: [NIRMATRELVIR 300MG]/[RITONAVIR 100MG], EVERY 12 HOURS (Q12H)
     Route: 048
     Dates: start: 20220422, end: 20220502
  2. ENTERAL NUTRITIONAL SUSPENSION (SP) [Concomitant]
     Indication: Supportive care
     Dosage: NASOGASTRIC
     Dates: start: 20220421, end: 20220502
  3. PRAVASTATIN SODIUM [Concomitant]
     Active Substance: PRAVASTATIN SODIUM
     Indication: Lipids decreased
     Dosage: UNK
     Route: 048
     Dates: start: 20220421, end: 20220501
  4. LEVAMLODIPINE BESYLATE [Concomitant]
     Active Substance: LEVAMLODIPINE BESYLATE
     Indication: Hypotension
     Dosage: UNK
     Route: 048
     Dates: start: 20220421, end: 20220501
  5. METOPROLOL SUCCINATE [Concomitant]
     Active Substance: METOPROLOL SUCCINATE
     Indication: Therapeutic procedure
     Dosage: EXTENDED-RELEASE
     Route: 048
     Dates: start: 20220421, end: 20220501
  6. ISOSORBIDE MONONITRATE [Concomitant]
     Active Substance: ISOSORBIDE MONONITRATE
     Indication: Therapeutic procedure
     Dosage: SUSTAINED-RELEASE
     Route: 048
     Dates: start: 20220421, end: 20220501
  7. PIRACETAM [Concomitant]
     Active Substance: PIRACETAM
     Indication: Drug therapy
     Dosage: UNK
     Route: 048
     Dates: start: 20220421, end: 20220501
  8. CALCITRIOL [Concomitant]
     Active Substance: CALCITRIOL
     Indication: Mineral supplementation
     Dosage: UNK
     Route: 048
     Dates: start: 20220421, end: 20220501
  9. RIVAROXABAN [Concomitant]
     Active Substance: RIVAROXABAN
     Indication: Prophylaxis
     Dosage: UNK
     Route: 048
     Dates: start: 20220421, end: 20220424
  10. OXYGEN [Concomitant]
     Active Substance: OXYGEN
     Indication: COVID-19
     Dosage: INHALE
     Route: 055
     Dates: start: 20220421, end: 20220425
  11. OXYGEN [Concomitant]
     Active Substance: OXYGEN
     Dosage: INTAKE
     Route: 055
     Dates: start: 20220424, end: 20220425
  12. OXYGEN [Concomitant]
     Active Substance: OXYGEN
     Dosage: INTAKE
     Route: 055
     Dates: start: 20220427, end: 20220429
  13. DEXTROSE [Concomitant]
     Active Substance: DEXTROSE\DEXTROSE MONOHYDRATE
     Indication: Mineral supplementation
     Dosage: UNK
     Route: 042
     Dates: start: 20220423, end: 20220424
  14. AMBROXOL HYDROCHLORIDE [Concomitant]
     Active Substance: AMBROXOL HYDROCHLORIDE
     Indication: Mucolytic treatment
     Dosage: UNK
     Route: 042
     Dates: start: 20220423, end: 20220424
  15. CEFMETAZOLE SODIUM [Concomitant]
     Active Substance: CEFMETAZOLE SODIUM
     Indication: Infection prophylaxis
     Dosage: UNK
     Route: 042
     Dates: start: 20220423, end: 20220424
  16. MOXIFLOXACIN HYDROCHLORIDE [Concomitant]
     Active Substance: MOXIFLOXACIN HYDROCHLORIDE\MOXIFLOXACIN HYDROCHLORIDE MONOHYDRATE
     Indication: Anti-infective therapy
     Dosage: UNK
     Route: 042
     Dates: start: 20220424, end: 20220425
  17. CEFEPIME HYDROCHLORIDE [Concomitant]
     Active Substance: CEFEPIME HYDROCHLORIDE
     Indication: Anti-infective therapy
     Dosage: UNK
     Route: 042
     Dates: start: 20220424, end: 20220424
  18. AMINOPHYLLINE [Concomitant]
     Active Substance: AMINOPHYLLINE
     Indication: Asthma
     Dosage: UNK
     Route: 042
     Dates: start: 20220424, end: 20220424
  19. POTASSIUM CHLORIDE [Concomitant]
     Active Substance: POTASSIUM CHLORIDE
     Indication: Mineral supplementation
     Dosage: UNK
     Route: 042
     Dates: start: 20220424, end: 20220501
  20. POTASSIUM CHLORIDE [Concomitant]
     Active Substance: POTASSIUM CHLORIDE
     Dosage: UNK
     Route: 042
     Dates: start: 20220507, end: 20220509
  21. ENOXAPARIN SODIUM [Concomitant]
     Active Substance: ENOXAPARIN SODIUM
     Indication: Anticoagulant therapy
     Dosage: UNK
     Route: 058
     Dates: start: 20220501, end: 20220508
  22. ENOXAPARIN SODIUM [Concomitant]
     Active Substance: ENOXAPARIN SODIUM
     Dosage: UNK
     Route: 042
     Dates: start: 20220508, end: 20220509
  23. VITAMIN C [Concomitant]
     Active Substance: ASCORBIC ACID
     Indication: Supportive care
     Dosage: UNK
     Route: 042
     Dates: start: 20220501, end: 20220509
  24. TIGECYCLINE [Concomitant]
     Active Substance: TIGECYCLINE
     Indication: Anti-infective therapy
     Dosage: UNK
     Route: 042
     Dates: start: 20220501, end: 20220502
  25. METHYLPREDNISOLONE SODIUM SUCCINATE [Concomitant]
     Active Substance: METHYLPREDNISOLONE SODIUM SUCCINATE
     Indication: Asthma
     Dosage: UNK
     Route: 042
     Dates: start: 20220501, end: 20220502
  26. OMEPRAZOLE SODIUM [Concomitant]
     Active Substance: OMEPRAZOLE SODIUM
     Indication: Prophylaxis
     Dosage: UNK
     Route: 042
     Dates: start: 20220501, end: 20220502
  27. FLUCONAZOLE [Concomitant]
     Active Substance: FLUCONAZOLE
     Indication: Anti-infective therapy
     Dosage: UNK
     Route: 042
     Dates: start: 20220502, end: 20220503
  28. TEICOPLANIN [Concomitant]
     Active Substance: TEICOPLANIN
     Indication: Anti-infective therapy
     Dosage: UNK
     Route: 042
     Dates: start: 20220502, end: 20220509

REACTIONS (1)
  - Overdose [Unknown]
